FAERS Safety Report 21315943 (Version 4)
Quarter: 2022Q3

REPORT INFORMATION
  Report Type: Spontaneous
  Country: US (occurrence: US)
  Receive Date: 20220910
  Receipt Date: 20220924
  Transmission Date: 20221027
  Serious: No
  Sender: FDA-Public Use
  Company Number: US-UNITED THERAPEUTICS-UNT-2022-019816

PATIENT
  Sex: Female
  Weight: 46.712 kg

DRUGS (14)
  1. TYVASO [Suspect]
     Active Substance: TREPROSTINIL
     Indication: Pulmonary arterial hypertension
     Dosage: UNK
     Dates: start: 20220815
  2. TYVASO [Suspect]
     Active Substance: TREPROSTINIL
     Dosage: 18 ?G, QID
     Dates: start: 202208
  3. TYVASO [Suspect]
     Active Substance: TREPROSTINIL
     Dosage: 12 ?G, QID
     Dates: start: 2022
  4. TYVASO [Suspect]
     Active Substance: TREPROSTINIL
     Dosage: 18 ?G, QID
     Dates: start: 2022
  5. TYVASO [Suspect]
     Active Substance: TREPROSTINIL
     Dosage: 36 ?G, QID
     Dates: start: 2022
  6. TYVASO [Suspect]
     Active Substance: TREPROSTINIL
     Dosage: 42 ?G, QID
     Dates: start: 2022
  7. TYVASO [Suspect]
     Active Substance: TREPROSTINIL
     Dosage: 54 ?G, QID
     Dates: start: 2022
  8. VELETRI [Suspect]
     Active Substance: EPOPROSTENOL
     Indication: Pulmonary arterial hypertension
     Dosage: 0.017 ?G/KG (1 TIME EVERY 1 MINUTE)
     Route: 042
  9. VELETRI [Suspect]
     Active Substance: EPOPROSTENOL
     Dosage: 0.015 ?G/KG (1 TIME EVERY 1 MINUTE)
     Route: 042
  10. VELETRI [Suspect]
     Active Substance: EPOPROSTENOL
     Dosage: 0.013 ?G/KG, CONTINUING
     Route: 042
  11. VELETRI [Suspect]
     Active Substance: EPOPROSTENOL
     Dosage: 0.011 ?G/KG, CONTINUING
     Route: 042
  12. VELETRI [Suspect]
     Active Substance: EPOPROSTENOL
     Dosage: 0.009 ?G/KG, CONTINUING
     Route: 042
  13. ADEMPAS [Concomitant]
     Active Substance: RIOCIGUAT
     Indication: Product used for unknown indication
     Dosage: UNK
     Route: 065
  14. OPSUMIT [Concomitant]
     Active Substance: MACITENTAN
     Indication: Product used for unknown indication
     Dosage: UNK
     Route: 065

REACTIONS (16)
  - Dizziness [Unknown]
  - Blood pressure decreased [Recovering/Resolving]
  - Dyspnoea [Not Recovered/Not Resolved]
  - Cough [Unknown]
  - Headache [Unknown]
  - Dyspnoea exertional [Unknown]
  - Insomnia [Recovering/Resolving]
  - Exercise tolerance decreased [Not Recovered/Not Resolved]
  - Diarrhoea [Recovering/Resolving]
  - Weight increased [Unknown]
  - Joint swelling [Not Recovered/Not Resolved]
  - Flushing [Unknown]
  - Heart rate decreased [Unknown]
  - Accidental overdose [Recovered/Resolved]
  - Peripheral swelling [Not Recovered/Not Resolved]
  - Compression fracture [Unknown]

NARRATIVE: CASE EVENT DATE: 20220101
